FAERS Safety Report 6228155-7 (Version None)
Quarter: 2009Q2

REPORT INFORMATION
  Report Type: 
  Country: None (occurrence: None)
  Receive Date: 20090612
  Receipt Date: 20090601
  Transmission Date: 20091009
  Serious: Yes (Hospitalization, Other)
  Sender: FDA-Public Use
  Company Number: US-ELI_LILLY_AND_COMPANY-US200608000476

PATIENT
  Sex: Male
  Weight: 99.773 kg

DRUGS (12)
  1. ZYPREXA [Suspect]
     Dosage: 15 MG, UNK
     Dates: start: 19960101, end: 20020301
  2. ZYPREXA [Suspect]
     Dosage: 5 MG, UNK
  3. ZYPREXA [Suspect]
     Dosage: 10 MG, UNK
     Dates: start: 20000411
  4. ZYPREXA [Suspect]
     Dosage: 20 MG, UNK
     Dates: start: 20011218, end: 20020201
  5. LITHIUM [Concomitant]
     Dosage: 300 MG, UNK
     Dates: start: 20000101, end: 20011001
  6. FLUOXETINE                              /N/A/ [Concomitant]
     Dosage: 20 MG, UNK
     Dates: start: 20000101, end: 20030401
  7. CLONAZEPAM [Concomitant]
     Dosage: 1 MG, UNK
  8. NEURONTIN [Concomitant]
     Dosage: 300 MG, UNK
  9. NEURONTIN [Concomitant]
     Dosage: 400 MG, UNK
     Dates: start: 20000411
  10. NEURONTIN [Concomitant]
     Dosage: 800 MG, UNK
     Dates: start: 20010103
  11. TRILEPTAL [Concomitant]
     Dosage: 300 MG, UNK
     Dates: start: 20051229
  12. LYRICA [Concomitant]
     Dosage: 50 MG, UNK
     Dates: start: 20060303

REACTIONS (11)
  - BLOOD CHOLESTEROL ABNORMAL [None]
  - DIABETES MELLITUS [None]
  - HYPERTENSION [None]
  - LYMPHOCYTE COUNT INCREASED [None]
  - MONOCYTE COUNT INCREASED [None]
  - MYOCARDIAL INFARCTION [None]
  - PNEUMONIA [None]
  - RESPIRATORY FAILURE [None]
  - SUBDURAL HAEMATOMA [None]
  - VASCULAR GRAFT [None]
  - WHITE BLOOD CELL COUNT INCREASED [None]
